FAERS Safety Report 24231823 (Version 2)
Quarter: 2024Q3

REPORT INFORMATION
  Report Type: Spontaneous
  Country: DK (occurrence: DK)
  Receive Date: 20240821
  Receipt Date: 20240822
  Transmission Date: 20241016
  Serious: Yes (Life-Threatening, Hospitalization, Other)
  Sender: MERCK
  Company Number: None

PATIENT
  Age: 63 Year
  Sex: Male

DRUGS (1)
  1. KEYTRUDA [Suspect]
     Active Substance: PEMBROLIZUMAB
     Indication: Hodgkin^s disease
     Dosage: DOSAGE INTERVAL UNKNOWN
     Route: 042
     Dates: start: 20240619, end: 2024

REACTIONS (14)
  - Erythema [Not Recovered/Not Resolved]
  - Dyspnoea [Unknown]
  - Pruritus [Recovering/Resolving]
  - Acute respiratory distress syndrome [Not Recovered/Not Resolved]
  - Liver disorder [Unknown]
  - Toxic epidermal necrolysis [Not Recovered/Not Resolved]
  - Dry eye [Recovering/Resolving]
  - Pneumonia [Unknown]
  - Oral disorder [Recovering/Resolving]
  - Rash [Not Recovered/Not Resolved]
  - Eosinophilia [Recovered/Resolved]
  - Asthenia [Unknown]
  - Skin exfoliation [Not Recovered/Not Resolved]
  - Blister [Not Recovered/Not Resolved]

NARRATIVE: CASE EVENT DATE: 20240701
